FAERS Safety Report 8393869 (Version 2)
Quarter: 2013Q2

REPORT INFORMATION
  Report Type: Report from Study
  Country: GB (occurrence: GB)
  Receive Date: 20120207
  Receipt Date: 20130423
  Transmission Date: 20140414
  Serious: Yes (Death)
  Sender: FDA-Public Use
  Company Number: GB-ROCHE-1037162

PATIENT
  Sex: Male
  Weight: 88 kg

DRUGS (2)
  1. RITUXIMAB [Suspect]
     Indication: PRODUCT USED FOR UNKNOWN INDICATION
     Route: 065
     Dates: start: 20110303
  2. SALAZOPYRIN [Concomitant]

REACTIONS (4)
  - Urinary tract infection [Fatal]
  - Large granular lymphocytosis [Fatal]
  - Left ventricular failure [Fatal]
  - Lower respiratory tract infection [Fatal]
